FAERS Safety Report 7157558-1 (Version None)
Quarter: 2010Q4

REPORT INFORMATION
  Report Type: 
  Country: None (occurrence: None)
  Receive Date: 20101214
  Receipt Date: 20100326
  Transmission Date: 20110411
  Serious: Yes (Hospitalization, Other)
  Sender: FDA-Public Use
  Company Number: US-ASTRAZENECA-2010SE07916

PATIENT
  Age: 30686 Day
  Sex: Male
  Weight: 62.1 kg

DRUGS (1)
  1. CRESTOR [Suspect]
     Indication: DYSLIPIDAEMIA
     Route: 048
     Dates: start: 20090204, end: 20091121

REACTIONS (3)
  - ASTHENIA [None]
  - BACK PAIN [None]
  - PAIN IN EXTREMITY [None]
